FAERS Safety Report 7178705-1 (Version None)
Quarter: 2010Q4

REPORT INFORMATION
  Report Type: 
  Country: None (occurrence: None)
  Receive Date: 20101221
  Receipt Date: 20101207
  Transmission Date: 20110411
  Serious: Yes (Disabling)
  Sender: FDA-Public Use
  Company Number: DK-DENTSPLY-2010-0105-EUR

PATIENT

DRUGS (2)
  1. XYLOCAINE [Suspect]
  2. DIOVAN [Interacting]
     Dates: start: 20050101

REACTIONS (15)
  - APHASIA [None]
  - BRAIN OEDEMA [None]
  - BRAIN STEM SYNDROME [None]
  - CENTRAL NERVOUS SYSTEM LESION [None]
  - DEPRESSED LEVEL OF CONSCIOUSNESS [None]
  - DIPLOPIA [None]
  - DYSPNOEA [None]
  - FEELING HOT [None]
  - HEART RATE DECREASED [None]
  - HEART RATE INCREASED [None]
  - HEART RATE IRREGULAR [None]
  - PAIN IN EXTREMITY [None]
  - PALPITATIONS [None]
  - SOMNOLENCE [None]
  - TINNITUS [None]
